FAERS Safety Report 21692178 (Version 1)
Quarter: 2022Q4

REPORT INFORMATION
  Report Type: Report from Study
  Country: US (occurrence: US)
  Receive Date: 20221207
  Receipt Date: 20221207
  Transmission Date: 20230113
  Serious: No
  Sender: FDA-Public Use
  Company Number: US-ABBVIE-4191513

PATIENT
  Age: 58 Year
  Sex: Male

DRUGS (1)
  1. HUMIRA [Suspect]
     Active Substance: ADALIMUMAB
     Indication: Rheumatoid arthritis
     Dosage: THE ONSET DATE FOR ADVERSE EVENTS SENSITIVE SKIN, LOCALIZED ITCHING, SKIN DISCOLORATION, ENERGY I...
     Route: 058
     Dates: start: 202203

REACTIONS (9)
  - Skin discolouration [Unknown]
  - Skin ulcer [Not Recovered/Not Resolved]
  - Fatigue [Recovering/Resolving]
  - Energy increased [Unknown]
  - Therapeutic response shortened [Unknown]
  - Pyrexia [Recovering/Resolving]
  - Sensitive skin [Unknown]
  - Pruritus [Unknown]
  - Hangover [Unknown]

NARRATIVE: CASE EVENT DATE: 20220301
